FAERS Safety Report 11227555 (Version 1)
Quarter: 2015Q2

REPORT INFORMATION
  Report Type: Spontaneous
  Country: US (occurrence: US)
  Receive Date: 20150630
  Receipt Date: 20150630
  Transmission Date: 20150821
  Serious: No
  Sender: FDA-Public Use
  Company Number: US-BEH-2014045613

PATIENT
  Age: 8 Year
  Sex: Male

DRUGS (2)
  1. HUMATE [Suspect]
     Active Substance: HUMAN COAGULATION FACTOR VIII/VON WILLEBRAND FACTOR COMPLEX
     Indication: HAEMORRHAGE
     Dosage: 1865 FACTOR 8 UNITS TIW
     Route: 042
  2. HUMATE [Suspect]
     Active Substance: HUMAN COAGULATION FACTOR VIII/VON WILLEBRAND FACTOR COMPLEX
     Indication: FACTOR VIII DEFICIENCY
     Dosage: 1865 FACTOR 8 UNITS EVERY 12 HOUR AS NEEDED
     Route: 042

REACTIONS (1)
  - Injury [Unknown]

NARRATIVE: CASE EVENT DATE: 20141004
